FAERS Safety Report 10085400 (Version 2)
Quarter: 2014Q3

REPORT INFORMATION
  Report Type: Spontaneous
  Country: GB (occurrence: GB)
  Receive Date: 20140418
  Receipt Date: 20140703
  Transmission Date: 20150326
  Serious: Yes (Other)
  Sender: FDA-Public Use
  Company Number: PHHY2014GB044075

PATIENT
  Sex: Female

DRUGS (3)
  1. CLARITHROMYCIN SANDOZ [Suspect]
     Active Substance: CLARITHROMYCIN
     Dosage: 250 MG, BID
     Route: 048
     Dates: start: 20140325
  2. LANSOPRAZOLE. [Suspect]
     Active Substance: LANSOPRAZOLE
     Dosage: 30 MG, UNK
     Dates: start: 20140325
  3. METRONIDAZOLE. [Suspect]
     Active Substance: METRONIDAZOLE
     Dosage: 400 MG, BID
     Dates: start: 20140325

REACTIONS (24)
  - Flushing [Unknown]
  - Back pain [Recovering/Resolving]
  - Eye pruritus [Unknown]
  - Eye pain [Recovering/Resolving]
  - Oral pain [Unknown]
  - Chills [Unknown]
  - Malaise [Unknown]
  - Fatigue [Unknown]
  - Oral pruritus [Unknown]
  - Product quality issue [None]
  - Dysgeusia [Not Recovered/Not Resolved]
  - Chromaturia [Not Recovered/Not Resolved]
  - Disorientation [Unknown]
  - Nausea [Recovering/Resolving]
  - Lip swelling [Recovering/Resolving]
  - Muscle twitching [Unknown]
  - Contusion [Unknown]
  - Diarrhoea [Unknown]
  - Somnolence [Unknown]
  - Feeling of body temperature change [Unknown]
  - Hearing impaired [Recovering/Resolving]
  - Arthralgia [Unknown]
  - Headache [Unknown]
  - Fear [None]

NARRATIVE: CASE EVENT DATE: 20140329
